FAERS Safety Report 21243551 (Version 1)
Quarter: 2022Q3

REPORT INFORMATION
  Report Type: Other
  Country: UY (occurrence: None)
  Receive Date: 20220823
  Receipt Date: 20220823
  Transmission Date: 20221027
  Serious: Yes (Death)
  Sender: FDA-Public Use
  Company Number: UY-ROCHE-3166235

PATIENT

DRUGS (3)
  1. MYCOPHENOLATE MOFETIL [Suspect]
     Active Substance: MYCOPHENOLATE MOFETIL
     Indication: Prophylaxis against graft versus host disease
     Dosage: (MAXIMUM DAILY DOSE, 3 G) FROM DAY +5
     Route: 048
  2. CYCLOPHOSPHAMIDE [Suspect]
     Active Substance: CYCLOPHOSPHAMIDE
     Indication: Prophylaxis against graft versus host disease
     Dosage: WITH MESNA (120% OF THE CYCLOPHOSPHAMIDE DOSE) ON DAYS +3 AND +4
     Route: 065
  3. CYCLOSPORINE [Suspect]
     Active Substance: CYCLOSPORINE
     Indication: Prophylaxis against graft versus host disease
     Route: 042

REACTIONS (1)
  - Post transplant lymphoproliferative disorder [Fatal]
